FAERS Safety Report 11330378 (Version 3)
Quarter: 2015Q4

REPORT INFORMATION
  Report Type: Report from Study
  Country: US (occurrence: US)
  Receive Date: 20150803
  Receipt Date: 20151225
  Transmission Date: 20160304
  Serious: Yes (Hospitalization, Other)
  Sender: FDA-Public Use
  Company Number: US-AMGEN-USASL2015077335

PATIENT
  Age: 69 Year
  Sex: Female

DRUGS (1)
  1. ENBREL [Suspect]
     Active Substance: ETANERCEPT
     Indication: PSORIASIS
     Dosage: UNK
     Route: 065
     Dates: start: 20150601, end: 2015

REACTIONS (8)
  - Fatigue [Unknown]
  - Hospitalisation [Unknown]
  - Dyspnoea [Unknown]
  - Dehydration [Unknown]
  - Blood sodium abnormal [Unknown]
  - Hypotension [Unknown]
  - Seizure [Unknown]
  - Immune system disorder [Unknown]

NARRATIVE: CASE EVENT DATE: 2015
